FAERS Safety Report 20363987 (Version 3)
Quarter: 2022Q1

REPORT INFORMATION
  Report Type: Report from Study
  Country: BR (occurrence: BR)
  Receive Date: 20220121
  Receipt Date: 20220221
  Transmission Date: 20220424
  Serious: Yes (Death, Life-Threatening, Hospitalization)
  Sender: FDA-Public Use
  Company Number: BR-NOVARTISPH-NVSC2022BR008268

PATIENT
  Age: 18 Month
  Sex: Female
  Weight: 12.2 kg

DRUGS (4)
  1. ONASEMNOGENE ABEPARVOVEC [Suspect]
     Active Substance: ONASEMNOGENE ABEPARVOVEC
     Indication: Spinal muscular atrophy
     Dosage: 138.2X10E13 GV, ONCE
     Route: 042
     Dates: start: 20220105, end: 20220105
  2. PREDNISOLONE [Concomitant]
     Active Substance: PREDNISOLONE
     Indication: Hepatic enzyme increased
     Dosage: 12 MG, QD
     Route: 048
     Dates: start: 20220104, end: 20220110
  3. PREDNISOLONE [Concomitant]
     Active Substance: PREDNISOLONE
     Dosage: 24 MG, QD
     Route: 048
     Dates: start: 20220111, end: 20220111
  4. METHYLPREDNISOLONE [Concomitant]
     Active Substance: METHYLPREDNISOLONE
     Indication: Hepatic enzyme increased
     Dosage: 24 MG, QD
     Route: 042
     Dates: start: 20220112

REACTIONS (3)
  - Thrombotic microangiopathy [Fatal]
  - Renal failure [Fatal]
  - Hepatic failure [Fatal]

NARRATIVE: CASE EVENT DATE: 20220111
